FAERS Safety Report 12975211 (Version 2)
Quarter: 2016Q4

REPORT INFORMATION
  Report Type: Spontaneous
  Country: JP (occurrence: JP)
  Receive Date: 20161125
  Receipt Date: 20161208
  Transmission Date: 20170207
  Serious: Yes (Hospitalization, Other)
  Sender: FDA-Public Use
  Company Number: JP-009507513-1611JPN010177

PATIENT
  Age: 26 Year
  Sex: Female

DRUGS (2)
  1. DECADRON [Suspect]
     Active Substance: DEXAMETHASONE
     Indication: PAIN IN EXTREMITY
     Dosage: UNK
     Route: 014
  2. DECADRON [Suspect]
     Active Substance: DEXAMETHASONE
     Indication: PYREXIA

REACTIONS (4)
  - Disseminated intravascular coagulation [Recovering/Resolving]
  - Cellulitis [Unknown]
  - Osteomyelitis [Unknown]
  - Sepsis [Unknown]
